FAERS Safety Report 20934449 (Version 1)
Quarter: 2022Q2

REPORT INFORMATION
  Report Type: Spontaneous
  Country: US (occurrence: US)
  Receive Date: 20220608
  Receipt Date: 20220608
  Transmission Date: 20220721
  Serious: No
  Sender: FDA-Public Use
  Company Number: US-JNJFOC-20220559163

PATIENT
  Age: 80 Year
  Sex: Female
  Weight: 51.756 kg

DRUGS (4)
  1. SIMPONI ARIA [Suspect]
     Active Substance: GOLIMUMAB
     Indication: Colitis ulcerative
     Route: 042
     Dates: start: 2021
  2. SIMPONI ARIA [Suspect]
     Active Substance: GOLIMUMAB
     Indication: Rheumatoid arthritis
  3. ISOSORBIDE MONONITRATE [Concomitant]
     Active Substance: ISOSORBIDE MONONITRATE
     Indication: Blood pressure measurement
  4. LABETALOL [Concomitant]
     Active Substance: LABETALOL\LABETALOL HYDROCHLORIDE
     Indication: Hypertension

REACTIONS (3)
  - Paraesthesia oral [Unknown]
  - Paraesthesia oral [Unknown]
  - Fatigue [Unknown]

NARRATIVE: CASE EVENT DATE: 20220526
